FAERS Safety Report 10184099 (Version 1)
Quarter: 2014Q2

REPORT INFORMATION
  Report Type: Spontaneous
  Country: US (occurrence: US)
  Receive Date: 20140520
  Receipt Date: 20140520
  Transmission Date: 20141212
  Serious: No
  Sender: FDA-Public Use
  Company Number: US-ASTRAZENECA-2013SE67443

PATIENT
  Sex: 0

DRUGS (4)
  1. ENTOCORT EC [Suspect]
     Route: 048
  2. PENTASA [Suspect]
     Route: 065
  3. CIPRO [Suspect]
     Route: 065
  4. FLAGYL [Suspect]
     Route: 065

REACTIONS (2)
  - Condition aggravated [Unknown]
  - Drug ineffective [Unknown]
